FAERS Safety Report 5515407-9 (Version None)
Quarter: 2007Q4

REPORT INFORMATION
  Report Type: 
  Country: None (occurrence: None)
  Receive Date: 20071113
  Receipt Date: 20070209
  Transmission Date: 20080405
  Serious: No
  Sender: FDA-Public Use
  Company Number: A0639033A

PATIENT
  Age: 66 Year
  Sex: Female

DRUGS (10)
  1. COREG [Suspect]
     Indication: HYPERTENSION
     Dosage: 6.25MG VARIABLE DOSE
     Route: 048
     Dates: start: 20070112
  2. VITAMIN TAB [Concomitant]
  3. COD FISH OIL [Concomitant]
  4. Q-10 [Concomitant]
  5. ENALAPRIL MALEATE [Concomitant]
  6. METFORMIN HCL [Concomitant]
  7. ASPIRIN [Concomitant]
  8. ZETIA [Concomitant]
  9. ALLEGRA [Concomitant]
  10. HYDROCHLOROTHIAZIDE [Concomitant]

REACTIONS (1)
  - OEDEMA PERIPHERAL [None]
